FAERS Safety Report 16939609 (Version 2)
Quarter: 2020Q4

REPORT INFORMATION
  Report Type: Spontaneous
  Country: US (occurrence: US)
  Receive Date: 20191021
  Receipt Date: 20201021
  Transmission Date: 20210113
  Serious: No
  Sender: FDA-Public Use
  Company Number: US-HIKMA PHARMACEUTICALS USA INC.-US-H14001-19-04967

PATIENT
  Age: 74 Year
  Sex: Male

DRUGS (3)
  1. ALLOPURINOL. [Concomitant]
     Active Substance: ALLOPURINOL
     Indication: GOUT
     Route: 065
  2. MITIGARE [Suspect]
     Active Substance: COLCHICINE
     Dosage: 2 TABLETS AT ONSET OF ATTACK, THEN 1 TABLET AN HOUR LATER FOR A WEEK
     Route: 048
     Dates: start: 201906, end: 20190708
  3. MITIGARE [Suspect]
     Active Substance: COLCHICINE
     Indication: GOUT
     Dosage: ONE TABLETS AT A DOSE OF  0.6 MG,  24 HOURS BEFORE POSSIBLE GOUT ATTACK AND 2 TABLETS AT ONSET OF AT
     Route: 048
     Dates: start: 20190827

REACTIONS (2)
  - Drug ineffective [Recovered/Resolved]
  - Fear of death [Recovered/Resolved]

NARRATIVE: CASE EVENT DATE: 201810
